FAERS Safety Report 5050090-0 (Version None)
Quarter: 2006Q3

REPORT INFORMATION
  Report Type: 
  Country: None (occurrence: None)
  Receive Date: 20060706
  Receipt Date: 20060622
  Transmission Date: 20061208
  Serious: Yes (Other)
  Sender: FDA-Public Use
  Company Number: 2006US-02707

PATIENT
  Age: 17 Year
  Sex: Male

DRUGS (1)
  1. ISOTRETINOIN [Suspect]
     Dosage: 40 MG, BID
     Dates: start: 20060101, end: 20060622

REACTIONS (11)
  - AGITATION [None]
  - ALCOHOLISM [None]
  - DEPRESSION [None]
  - DISTURBANCE IN ATTENTION [None]
  - EDUCATIONAL PROBLEM [None]
  - EMOTIONAL DISORDER [None]
  - FATIGUE [None]
  - HYPERSOMNIA [None]
  - IMPATIENCE [None]
  - IRRITABILITY [None]
  - SOCIAL AVOIDANT BEHAVIOUR [None]
